FAERS Safety Report 7251396-7 (Version None)
Quarter: 2011Q1

REPORT INFORMATION
  Report Type: 
  Country: None (occurrence: None)
  Receive Date: 20110128
  Receipt Date: 20110121
  Transmission Date: 20110831
  Serious: Yes (Other)
  Sender: FDA-Public Use
  Company Number: US-PURDUE-USA-2011-0062877

PATIENT
  Sex: Female

DRUGS (1)
  1. BETADINE [Suspect]
     Indication: PROPHYLAXIS
     Dosage: UNK
     Route: 065
     Dates: start: 20100101

REACTIONS (3)
  - ANAPHYLACTIC SHOCK [None]
  - URTICARIA [None]
  - HYPERTENSION [None]
